FAERS Safety Report 6555843-5 (Version None)
Quarter: 2010Q1

REPORT INFORMATION
  Report Type: 
  Country: None (occurrence: None)
  Receive Date: 20100128
  Receipt Date: 20100120
  Transmission Date: 20100710
  Serious: Yes (Hospitalization)
  Sender: FDA-Public Use
  Company Number: US-SANOFI-AVENTIS-2009SA009692

PATIENT
  Age: 68 Year
  Sex: Male
  Weight: 75 kg

DRUGS (14)
  1. MULTAQ [Suspect]
     Indication: ATRIAL FIBRILLATION
     Route: 048
     Dates: end: 20091207
  2. MULTAQ [Suspect]
     Route: 048
     Dates: start: 20091101
  3. COREG [Concomitant]
     Route: 065
  4. CARDIZEM [Concomitant]
     Route: 048
  5. IMDUR [Concomitant]
  6. AMARYL [Concomitant]
     Route: 048
  7. ASPIRIN [Concomitant]
     Route: 048
  8. ZESTRIL [Concomitant]
     Route: 048
  9. LIPITOR [Concomitant]
     Route: 048
  10. COUMADIN [Concomitant]
     Dosage: 5 MG DAILY EXCEPT MONDAY AND FRIDAY (7.5MG)
     Route: 048
  11. SIMVASTATIN [Concomitant]
     Route: 048
  12. FISH OIL [Concomitant]
  13. MULTI-VITAMINS [Concomitant]
  14. K-DUR [Concomitant]
     Route: 048

REACTIONS (10)
  - ABDOMINAL DISCOMFORT [None]
  - ABDOMINAL DISTENSION [None]
  - CARDIAC FAILURE [None]
  - CARDIAC FAILURE CONGESTIVE [None]
  - CONDITION AGGRAVATED [None]
  - DYSPNOEA [None]
  - HYPOXIA [None]
  - IMPAIRED GASTRIC EMPTYING [None]
  - NAUSEA [None]
  - OEDEMA PERIPHERAL [None]
